FAERS Safety Report 7286828-1 (Version None)
Quarter: 2011Q1

REPORT INFORMATION
  Report Type: 
  Country: None (occurrence: None)
  Receive Date: 20110210
  Receipt Date: 20110131
  Transmission Date: 20110831
  Serious: Yes (Other)
  Sender: FDA-Public Use
  Company Number: US-BAYER-201018304NA

PATIENT
  Sex: Male

DRUGS (6)
  1. GADOLINIUM IN UNSPECIFIED DRUG [Suspect]
     Indication: IMAGING PROCEDURE
     Dates: start: 20040614, end: 20040614
  2. GADOLINIUM IN UNSPECIFIED DRUG [Suspect]
     Dates: start: 20070411, end: 20070411
  3. PROHANCE [Suspect]
     Indication: IMAGING PROCEDURE
  4. OPTIMARK [Suspect]
     Indication: IMAGING PROCEDURE
  5. OMNISCAN [Suspect]
     Indication: IMAGING PROCEDURE
  6. MULTIHANCE [Suspect]
     Indication: IMAGING PROCEDURE

REACTIONS (8)
  - GENERAL PHYSICAL HEALTH DETERIORATION [None]
  - SKIN FIBROSIS [None]
  - FIBROSIS [None]
  - EXTREMITY CONTRACTURE [None]
  - PAIN [None]
  - JOINT CONTRACTURE [None]
  - NEPHROGENIC SYSTEMIC FIBROSIS [None]
  - DEFORMITY [None]
